FAERS Safety Report 25372262 (Version 2)
Quarter: 2025Q2

REPORT INFORMATION
  Report Type: Report from Study
  Country: NL (occurrence: NL)
  Receive Date: 20250529
  Receipt Date: 20250602
  Transmission Date: 20250717
  Serious: Yes (Death, Other)
  Sender: UCB
  Company Number: NL-UCBSA-2025029677

PATIENT
  Age: 12 Year
  Sex: Female

DRUGS (1)
  1. FINTEPLA [Suspect]
     Active Substance: FENFLURAMINE
     Indication: Severe myoclonic epilepsy of infancy
     Dosage: 6 MILLILITER, 2X/DAY (BID)
     Dates: start: 202409, end: 20250513

REACTIONS (9)
  - Lennox-Gastaut syndrome [Fatal]
  - Discomfort [Fatal]
  - Constipation [Fatal]
  - Respiratory distress [Unknown]
  - Epilepsy [Unknown]
  - Gastrointestinal disorder [Unknown]
  - Scoliosis [Unknown]
  - Colonic lavage [Unknown]
  - Somnolence [Recovered/Resolved]

NARRATIVE: CASE EVENT DATE: 20250510
